FAERS Safety Report 9124653 (Version 1)
Quarter: 2013Q1

REPORT INFORMATION
  Report Type: Spontaneous
  Country: US (occurrence: US)
  Receive Date: 20130117
  Receipt Date: 20130117
  Transmission Date: 20140127
  Serious: Yes (Death, Other)
  Sender: FDA-Public Use
  Company Number: US-UCBSA-074853

PATIENT
  Age: 56 Year
  Sex: Male

DRUGS (4)
  1. ACETAMINOPHEN\HYDROCODONE [Suspect]
  2. HYDROXYZINE [Suspect]
  3. COCAINE [Suspect]
  4. DIAZEPAM [Suspect]

REACTIONS (1)
  - Suicide attempt [Fatal]
